FAERS Safety Report 18895507 (Version 1)
Quarter: 2021Q1

REPORT INFORMATION
  Report Type: Spontaneous
  Country: GB (occurrence: GB)
  Receive Date: 20210216
  Receipt Date: 20210216
  Transmission Date: 20210420
  Serious: Yes (Life-Threatening, Disabling)
  Sender: FDA-Public Use
  Company Number: GB-ROCHE-2769043

PATIENT
  Age: 62 Year
  Sex: Male
  Weight: 111 kg

DRUGS (23)
  1. BISOPROLOL [Concomitant]
     Active Substance: BISOPROLOL
  2. TOCILIZUMAB. [Suspect]
     Active Substance: TOCILIZUMAB
     Indication: CORONAVIRUS INFECTION
     Route: 065
     Dates: start: 20210124
  3. AMLODIPINE [Concomitant]
     Active Substance: AMLODIPINE BESYLATE
  4. COLCHICINE. [Concomitant]
     Active Substance: COLCHICINE
  5. LANSOPRAZOLE. [Concomitant]
     Active Substance: LANSOPRAZOLE
  6. PIPERACILLIN AND TAZOBACTAM [Concomitant]
     Active Substance: PIPERACILLIN SODIUM\TAZOBACTAM SODIUM
  7. SIMVASTATIN. [Concomitant]
     Active Substance: SIMVASTATIN
  8. ALFENTANIL. [Concomitant]
     Active Substance: ALFENTANIL
  9. CARBOCISTEINE [Concomitant]
     Active Substance: CARBOCYSTEINE
  10. METFORMIN [Concomitant]
     Active Substance: METFORMIN HYDROCHLORIDE
  11. MORPHINE [Concomitant]
     Active Substance: MORPHINE
  12. MEROPENEM. [Concomitant]
     Active Substance: MEROPENEM
  13. AMIODARONE [Concomitant]
     Active Substance: AMIODARONE
  14. CLONIDINE. [Concomitant]
     Active Substance: CLONIDINE
  15. PROPOFOL. [Concomitant]
     Active Substance: PROPOFOL
  16. DEXAMETHASONE. [Concomitant]
     Active Substance: DEXAMETHASONE
  17. DIGOXIN. [Concomitant]
     Active Substance: DIGOXIN
  18. NORADRENALINE [Concomitant]
     Active Substance: NOREPINEPHRINE
  19. ENOXAPARIN [Concomitant]
     Active Substance: ENOXAPARIN
  20. HUMULIN L [Concomitant]
     Active Substance: INSULIN HUMAN
  21. DOCUSATE SODIUM. [Concomitant]
     Active Substance: DOCUSATE SODIUM
  22. DULAGLUTIDE. [Concomitant]
     Active Substance: DULAGLUTIDE
  23. LISINOPRIL. [Concomitant]
     Active Substance: LISINOPRIL

REACTIONS (3)
  - Sepsis [Unknown]
  - Large intestine perforation [Not Recovered/Not Resolved]
  - Abdominal distension [Unknown]

NARRATIVE: CASE EVENT DATE: 20210208
